FAERS Safety Report 6139846-0 (Version None)
Quarter: 2009Q2

REPORT INFORMATION
  Report Type: 
  Country: None (occurrence: None)
  Receive Date: 20090401
  Receipt Date: 20090326
  Transmission Date: 20091009
  Serious: Yes (Other)
  Sender: FDA-Public Use
  Company Number: US-KINGPHARMUSA00001-K200900346

PATIENT
  Sex: Female

DRUGS (3)
  1. ALTACE [Suspect]
     Dosage: 2.5 MG, UNK
  2. ALTACE [Suspect]
     Dosage: UNK
  3. FELODIPINE [Suspect]
     Dosage: UNK

REACTIONS (4)
  - CARDIAC FAILURE CONGESTIVE [None]
  - DYSPNOEA [None]
  - OEDEMA PERIPHERAL [None]
  - PULMONARY OEDEMA [None]
